FAERS Safety Report 7789188-2 (Version None)
Quarter: 2011Q3

REPORT INFORMATION
  Report Type: 
  Country: None (occurrence: None)
  Receive Date: 20110930
  Receipt Date: 20110919
  Transmission Date: 20111222
  Serious: Yes (Life-Threatening, Hospitalization, Other)
  Sender: FDA-Public Use
  Company Number: DE-TEVA-301237GER

PATIENT
  Age: 69 Year
  Sex: Male
  Weight: 99 kg

DRUGS (7)
  1. OMEPRAZOL, 20 MG, KPS (MR), RATIOPHARM [Concomitant]
     Route: 048
     Dates: start: 19990101
  2. GLIMEPIRID, 2 MG, TABL, NN [Concomitant]
     Route: 048
     Dates: start: 20100101, end: 20110807
  3. METOBETA RETARD, 200 MG, RETARDTABL, BETAPHARM [Concomitant]
     Route: 048
     Dates: start: 20010101, end: 20110807
  4. ENALAPRIL MALEATE AND HYDROCHLOROTHIAZIDE [Suspect]
     Dosage: 1 DOSAGE FORMS; ENALAPRIL 20 MG + HYDROCHLOROTHIAZIDE 12.5 MG
     Route: 048
     Dates: start: 20010101, end: 20110807
  5. SPASMEX, 30 MG, FILMTABL, DR. PFLEGER [Concomitant]
     Route: 048
     Dates: start: 20100301
  6. NITRENDIPIN, 20 MG, TABL, RATIOPHARM [Concomitant]
     Dosage: 10 MILLIGRAM;
     Route: 048
     Dates: start: 20110704, end: 20110807
  7. METFORMIN HCL [Suspect]
     Indication: TYPE 2 DIABETES MELLITUS
     Route: 048
     Dates: start: 20090101, end: 20110807

REACTIONS (1)
  - RENAL FAILURE ACUTE [None]
